FAERS Safety Report 18077750 (Version 2)
Quarter: 2020Q3

REPORT INFORMATION
  Report Type: Report from Study
  Country: DE (occurrence: DE)
  Receive Date: 20200727
  Receipt Date: 20200813
  Transmission Date: 20201103
  Serious: Yes (Death, Hospitalization)
  Sender: FDA-Public Use
  Company Number: DE-ACTELION-A-NJ2020-207565

PATIENT
  Age: 76 Year
  Sex: Male

DRUGS (1)
  1. VENTAVIS [Suspect]
     Active Substance: ILOPROST
     Indication: PULMONARY ARTERIAL HYPERTENSION
     Dosage: 20 MCG
     Route: 055

REACTIONS (3)
  - General physical health deterioration [Fatal]
  - Dyspnoea [Unknown]
  - Death [Fatal]

NARRATIVE: CASE EVENT DATE: 20200530
